FAERS Safety Report 5009397-5 (Version None)
Quarter: 2006Q2

REPORT INFORMATION
  Report Type: 
  Country: None (occurrence: None)
  Receive Date: 20060522
  Receipt Date: 20060512
  Transmission Date: 20061013
  Serious: Yes (Hospitalization)
  Sender: FDA-Public Use
  Company Number: 2006PV012443

PATIENT
  Age: 59 Year
  Sex: Male

DRUGS (11)
  1. BYETTA [Suspect]
     Indication: DIABETES MELLITUS NON-INSULIN-DEPENDENT
     Dosage: SC
     Route: 058
  2. COREG [Concomitant]
  3. HYDRALAZINE HCL [Concomitant]
  4. TARCA [Concomitant]
  5. CATAPRES [Concomitant]
  6. PREDNISONE [Concomitant]
  7. LEXAPRO [Concomitant]
  8. GLUCOPHAGE [Concomitant]
  9. PROTONIX [Concomitant]
  10. LASIX [Concomitant]
  11. COUMADIN [Concomitant]

REACTIONS (2)
  - PNEUMONIA [None]
  - PULMONARY EMBOLISM [None]
